FAERS Safety Report 12679967 (Version 1)
Quarter: 2016Q3

REPORT INFORMATION
  Report Type: Spontaneous
  Country: US (occurrence: US)
  Receive Date: 20160824
  Receipt Date: 20160824
  Transmission Date: 20161109
  Serious: No
  Sender: FDA-Public Use
  Company Number: US-B.I. PHARMACEUTICALS,INC./RIDGEFIELD-2016-BI-54946BP

PATIENT
  Age: 67 Year
  Sex: Female

DRUGS (2)
  1. ABUTEROL [Concomitant]
     Indication: DRUG THERAPY
     Dosage: FORMULATION: INHALATION SPRAY
     Route: 055
  2. STIOLTO RESPIMAT [Suspect]
     Active Substance: OLODATEROL HYDROCHLORIDE\TIOTROPIUM BROMIDE MONOHYDRATE
     Indication: CHRONIC OBSTRUCTIVE PULMONARY DISEASE
     Dosage: 5 MCG
     Route: 055

REACTIONS (1)
  - Muscle spasms [Recovered/Resolved]
